FAERS Safety Report 8915309 (Version 1)
Quarter: 2012Q4

REPORT INFORMATION
  Report Type: Report from Study
  Country: JP (occurrence: JP)
  Receive Date: 20121119
  Receipt Date: 20121119
  Transmission Date: 20130627
  Serious: Yes (Hospitalization)
  Sender: FDA-Public Use
  Company Number: JP-US-EMD SERONO, INC.-7174112

PATIENT
  Sex: Female
  Weight: 51 kg

DRUGS (3)
  1. GONAL-F RFF PEN [Suspect]
     Indication: POLYCYSTIC OVARIES
     Route: 058
     Dates: start: 20100119, end: 20100124
  2. GONAL-F RFF PEN [Suspect]
     Indication: OVULATION INDUCTION
  3. CHORIONIC GONADOTROPIN [Suspect]
     Indication: OVULATION INDUCTION
     Route: 058
     Dates: start: 20100125, end: 20100125

REACTIONS (1)
  - Adnexal torsion [Recovered/Resolved]
